FAERS Safety Report 8398503-0 (Version None)
Quarter: 2012Q2

REPORT INFORMATION
  Report Type: 
  Country: None (occurrence: None)
  Receive Date: 20120524
  Receipt Date: 20120518
  Transmission Date: 20120825
  Serious: Yes (Hospitalization)
  Sender: FDA-Public Use
  Company Number: NGX_01079_2012

PATIENT
  Sex: Male

DRUGS (12)
  1. FOLIC ACID [Concomitant]
  2. QDCAL [Concomitant]
  3. GABAPENTIN [Concomitant]
  4. MULTI-VITAMINS [Concomitant]
  5. OXYNORM [Concomitant]
  6. OMEPRAZOLE [Concomitant]
  7. NEVIRAPINE [Concomitant]
  8. QUTENZA [Suspect]
     Indication: NEURALGIA
     Dosage: (DF [PATCH, STAT] TOPICAL)
     Route: 061
     Dates: start: 20120402, end: 20120402
  9. TRAMADOL HCL [Concomitant]
  10. ZOPICLONE [Concomitant]
  11. CLONAZEPAM [Concomitant]
  12. TRUVADA [Concomitant]

REACTIONS (6)
  - ENTEROVIRUS TEST POSITIVE [None]
  - CD4/CD8 RATIO DECREASED [None]
  - UPPER RESPIRATORY TRACT INFECTION [None]
  - BLOOD ALBUMIN DECREASED [None]
  - WHITE BLOOD CELLS URINE POSITIVE [None]
  - RED BLOOD CELLS URINE POSITIVE [None]
